FAERS Safety Report 8402055-6 (Version None)
Quarter: 2012Q2

REPORT INFORMATION
  Report Type: 
  Country: None (occurrence: None)
  Receive Date: 20120529
  Receipt Date: 20020322
  Transmission Date: 20120825
  Serious: Yes (Life-Threatening, Hospitalization)
  Sender: FDA-Public Use
  Company Number: 02100-JPN-02-0002

PATIENT
  Age: 74 Year
  Sex: Male
  Weight: 70.5 kg

DRUGS (16)
  1. RANTUDIL (ACEMETACIN) [Concomitant]
  2. BISOPROLOL FUMARATE [Concomitant]
  3. MUCOSTA (REBAMIPIDE) [Concomitant]
  4. ROCEPHIN [Concomitant]
  5. DOBUX (DOBUTAMINE HYDROCHLORIDE) [Concomitant]
  6. TANATRIL (IMIDAPRIL HYDROCHLORIDE) [Concomitant]
  7. COMESGEN (MECOBALAMIN) [Concomitant]
  8. LASIX [Concomitant]
  9. MV1 (VITAMINS NOS) [Concomitant]
  10. PENICILLIN G POTASSIUM (BENZYLPENICILLIN POASSIUM) [Concomitant]
  11. PLETAL [Suspect]
     Indication: ANGINA PECTORIS
     Dosage: 100 MG, BID, ORAL
     Route: 048
     Dates: start: 20010615, end: 20020119
  12. UNASYN [Concomitant]
  13. PROBITOR (GABEXATE MESILATE) [Concomitant]
  14. TAMSULOSIN HYDROCHLORIDE [Concomitant]
  15. MV1-3 (VITAMINS NOS) [Concomitant]
  16. FAMOTIDINE [Concomitant]

REACTIONS (7)
  - ARTHRALGIA [None]
  - INTERSTITIAL LUNG DISEASE [None]
  - RHEUMATIC FEVER [None]
  - SEPTIC SHOCK [None]
  - CHONDROCALCINOSIS PYROPHOSPHATE [None]
  - URINARY TRACT INFECTION [None]
  - EOSINOPHILIA [None]
